FAERS Safety Report 9601354 (Version 1)
Quarter: 2013Q4

REPORT INFORMATION
  Report Type: Report from Study
  Country: GB (occurrence: GB)
  Receive Date: 20131007
  Receipt Date: 20131007
  Transmission Date: 20140711
  Serious: Yes (Hospitalization)
  Sender: FDA-Public Use
  Company Number: GB-ROCHE-1283597

PATIENT
  Age: 63 Year
  Sex: Male
  Weight: 84 kg

DRUGS (8)
  1. CAPECITABINE [Suspect]
     Indication: GASTRIC CANCER
     Dosage: LAST DOSE GIVEN ON 07/MAY/2013
     Route: 048
     Dates: start: 20130326
  2. BEVACIZUMAB [Suspect]
     Indication: GASTRIC CANCER
     Dosage: LAST DOSE GIVEN ON 07/MAY/2013
     Route: 042
     Dates: start: 20130326
  3. EPIRUBICIN [Suspect]
     Indication: GASTRIC CANCER
     Dosage: LAST DOSE GIVEN ON 07/MAY/2013
     Route: 042
     Dates: start: 20130326
  4. CISPLATIN [Suspect]
     Indication: GASTRIC CANCER
     Dosage: LAST DOSE GIVEN ON 07/MAY/2013
     Route: 042
     Dates: start: 20130326
  5. RAMIPRIL [Suspect]
     Indication: PRODUCT USED FOR UNKNOWN INDICATION
     Route: 048
     Dates: start: 2011
  6. BENDROFLUAZIDE [Suspect]
     Indication: PRODUCT USED FOR UNKNOWN INDICATION
     Route: 048
     Dates: start: 2011
  7. BISOPROLOL [Suspect]
     Indication: PRODUCT USED FOR UNKNOWN INDICATION
     Route: 048
     Dates: start: 2011
  8. SIMVASTATIN [Suspect]
     Indication: PRODUCT USED FOR UNKNOWN INDICATION
     Route: 048
     Dates: start: 2009

REACTIONS (1)
  - Calculus ureteric [Recovered/Resolved]
